FAERS Safety Report 11472792 (Version 4)
Quarter: 2015Q4

REPORT INFORMATION
  Report Type: Spontaneous
  Country: US (occurrence: US)
  Receive Date: 20150908
  Receipt Date: 20151022
  Transmission Date: 20160304
  Serious: Yes (Death, Hospitalization, Other)
  Sender: FDA-Public Use
  Company Number: US-009507513-1509USA004267

PATIENT
  Sex: Female
  Weight: 100 kg

DRUGS (1)
  1. JANUVIA [Suspect]
     Active Substance: SITAGLIPTIN PHOSPHATE
     Indication: TYPE 2 DIABETES MELLITUS
     Dosage: 100 MG, QD
     Route: 048
     Dates: start: 20090420, end: 20131121

REACTIONS (6)
  - Transient ischaemic attack [Unknown]
  - Diabetes mellitus inadequate control [Unknown]
  - Death [Fatal]
  - Pancreatic carcinoma [Unknown]
  - Ulcer [Unknown]
  - Diabetic nephropathy [Unknown]

NARRATIVE: CASE EVENT DATE: 201309
